FAERS Safety Report 15235231 (Version 4)
Quarter: 2019Q1

REPORT INFORMATION
  Report Type: Report from Study
  Country: JP (occurrence: JP)
  Receive Date: 20180803
  Receipt Date: 20190131
  Transmission Date: 20190417
  Serious: Yes (Death, Other)
  Sender: FDA-Public Use
  Company Number: JP-BEH-2018093408

PATIENT
  Age: 87 Year
  Sex: Male
  Weight: 53 kg

DRUGS (14)
  1. WARFARIN [Concomitant]
     Active Substance: WARFARIN
     Indication: PROPHYLAXIS
     Dosage: 3 MG, QD
     Route: 065
     Dates: start: 20080202, end: 20180112
  2. METHYLCOBALAMIN. [Concomitant]
     Active Substance: METHYLCOBALAMIN
     Dosage: UNK
     Route: 048
     Dates: end: 20180227
  3. BERIPLEX P/N [Suspect]
     Active Substance: COAGULATION FACTOR IX HUMAN\COAGULATION FACTOR VII HUMAN\COAGULATION FACTOR X HUMAN\PROTEIN C\PROTEIN S HUMAN\PROTHROMBIN
     Indication: PROTHROMBIN TIME PROLONGED
     Dosage: 1500 IU, TOT
     Route: 042
     Dates: start: 20180111
  4. ELIQUIS [Suspect]
     Active Substance: APIXABAN
     Indication: ATRIAL FIBRILLATION
     Dosage: 5 MG, UNK
     Route: 048
     Dates: start: 20180131, end: 20180227
  5. CILNIDIPINE [Concomitant]
     Active Substance: CILNIDIPINE
     Dosage: UNK
     Route: 048
     Dates: end: 20180227
  6. BERIPLEX P/N [Suspect]
     Active Substance: COAGULATION FACTOR IX HUMAN\COAGULATION FACTOR VII HUMAN\COAGULATION FACTOR X HUMAN\PROTEIN C\PROTEIN S HUMAN\PROTHROMBIN
     Dosage: UNK
     Route: 042
  7. BAYASPIRIN [Suspect]
     Active Substance: ASPIRIN
     Dosage: UNK
     Route: 048
     Dates: end: 20180227
  8. KAYTWO N [Concomitant]
     Active Substance: MENATETRENONE
     Indication: PROCOAGULANT THERAPY
     Dosage: 10 MG, QD
     Route: 065
     Dates: start: 20180111, end: 20180111
  9. WARFARIN [Concomitant]
     Active Substance: WARFARIN
     Indication: ATRIAL FIBRILLATION
     Dosage: UNK
     Route: 048
     Dates: end: 20180131
  10. CARVEDILOL. [Concomitant]
     Active Substance: CARVEDILOL
     Dosage: UNK
     Route: 048
     Dates: end: 20180227
  11. RYTHMODAN                          /00271801/ [Concomitant]
     Active Substance: DISOPYRAMIDE
     Dosage: UNK
     Route: 048
     Dates: end: 20180227
  12. RABEPRAZOLE SODIUM. [Concomitant]
     Active Substance: RABEPRAZOLE SODIUM
     Indication: PROPHYLAXIS AGAINST GASTROINTESTINAL ULCER
     Dosage: UNK
     Route: 048
     Dates: end: 20180227
  13. BERIPLEX P/N [Suspect]
     Active Substance: COAGULATION FACTOR IX HUMAN\COAGULATION FACTOR VII HUMAN\COAGULATION FACTOR X HUMAN\PROTEIN C\PROTEIN S HUMAN\PROTHROMBIN
     Dosage: UNK
     Route: 042
  14. HYDREA [Suspect]
     Active Substance: HYDROXYUREA
     Dosage: UNK
     Route: 048
     Dates: end: 20180227

REACTIONS (6)
  - Haemoptysis [Fatal]
  - Shock haemorrhagic [Fatal]
  - Pulmonary haemorrhage [Fatal]
  - Haematemesis [Unknown]
  - Cardio-respiratory arrest [Fatal]
  - Gastrointestinal haemorrhage [Unknown]

NARRATIVE: CASE EVENT DATE: 20180227
